FAERS Safety Report 5288457-8 (Version None)
Quarter: 2007Q2

REPORT INFORMATION
  Report Type: 
  Country: None (occurrence: None)
  Receive Date: 20070405
  Receipt Date: 20070327
  Transmission Date: 20071010
  Serious: Yes (Other)
  Sender: FDA-Public Use
  Company Number: PHEH2004US09663

PATIENT
  Age: 58 Year
  Sex: Female
  Weight: 50.793 kg

DRUGS (17)
  1. ESTRADERM [Suspect]
     Indication: HORMONE REPLACEMENT THERAPY
     Route: 062
     Dates: start: 19990701, end: 19990901
  2. MPA [Suspect]
     Indication: MENOPAUSE
     Dosage: 2.5MG UNK
     Dates: start: 19980320, end: 20001017
  3. PROVERA [Suspect]
     Dates: start: 19980301, end: 20001001
  4. PREMARIN [Suspect]
     Indication: MENOPAUSE
     Dosage: 0.625MG UNK
     Dates: start: 19980320, end: 20001017
  5. PREMPRO [Suspect]
     Indication: MENOPAUSE
     Dosage: .625MG UNK
     Dates: start: 20001017, end: 20010219
  6. CYCRIN [Suspect]
     Dates: start: 19980320
  7. PROMETRIUM [Suspect]
     Dosage: 100MG UNK
     Dates: start: 20010313, end: 20010912
  8. IMITREX [Concomitant]
     Indication: MIGRAINE
     Dosage: 25MG UNK
     Dates: start: 19961107
  9. NORFLEX [Concomitant]
     Dosage: 100MG UNK
     Dates: start: 19970505
  10. ERCAF [Concomitant]
     Indication: MIGRAINE
     Dates: start: 19960901
  11. RESPAIRE-120 [Concomitant]
     Indication: MIGRAINE
     Dosage: 250/120MG UNK
     Dates: start: 19990727
  12. TAMOXIFEN CITRATE [Concomitant]
     Dosage: 10MG BID
     Dates: start: 20010329, end: 20011201
  13. KEFLEX /USA/ [Concomitant]
     Dates: start: 20010612
  14. ARIMIDEX [Concomitant]
     Dosage: 1MG QAM
     Dates: start: 20011220
  15. TRAZODONE HCL [Concomitant]
  16. FOSAMAX [Concomitant]
     Dosage: 70MG QWK
     Dates: start: 20030331
  17. CALCIUM W/VITAMIN D NOS [Concomitant]

REACTIONS (26)
  - ARTHRALGIA [None]
  - BREAST CANCER STAGE II [None]
  - BREAST CYST [None]
  - DIVERTICULUM INTESTINAL [None]
  - ERYTHEMA [None]
  - FALL [None]
  - FRACTURE REDUCTION [None]
  - HAEMORRHOIDS [None]
  - HOT FLUSH [None]
  - IMPACTED FRACTURE [None]
  - INSOMNIA [None]
  - MALIGNANT BREAST LUMP REMOVAL [None]
  - MYALGIA [None]
  - OSTEOPENIA [None]
  - OSTEOPOROSIS [None]
  - PAIN [None]
  - POST PROCEDURAL FISTULA [None]
  - POSTOPERATIVE ABSCESS [None]
  - POSTOPERATIVE WOUND INFECTION [None]
  - PURULENT DISCHARGE [None]
  - RADIATION ASSOCIATED PAIN [None]
  - RADIOTHERAPY [None]
  - SWELLING [None]
  - VASCULAR CALCIFICATION [None]
  - VISUAL DISTURBANCE [None]
  - WOUND NECROSIS [None]
